FAERS Safety Report 5262507-7 (Version None)
Quarter: 2007Q1

REPORT INFORMATION
  Report Type: 
  Country: None (occurrence: None)
  Receive Date: 20070312
  Receipt Date: 20070227
  Transmission Date: 20070707
  Serious: Yes (Other)
  Sender: FDA-Public Use
  Company Number: GB-AVENTIS-200712011GDDC

PATIENT
  Age: 24 Year
  Sex: Female
  Weight: 55.9 kg

DRUGS (4)
  1. LEFLUNOMIDE [Suspect]
     Route: 048
     Dates: start: 20041001, end: 20070101
  2. ACECLOFENAC [Concomitant]
     Route: 048
     Dates: end: 20070201
  3. CYCLOSPORINE [Concomitant]
     Route: 048
     Dates: start: 20031201, end: 20070201
  4. CO-PROXAMOL [Concomitant]
     Dosage: DOSE: 2 DOSE FORMS
     Route: 048

REACTIONS (1)
  - ALANINE AMINOTRANSFERASE INCREASED [None]
